FAERS Safety Report 6235113-5 (Version None)
Quarter: 2009Q2

REPORT INFORMATION
  Report Type: 
  Country: None (occurrence: None)
  Receive Date: 20090615
  Receipt Date: 20090603
  Transmission Date: 20091009
  Serious: Yes (Death, Other)
  Sender: FDA-Public Use
  Company Number: 2009-02212

PATIENT

DRUGS (2)
  1. VELCADE [Suspect]
     Indication: NON-HODGKIN'S LYMPHOMA
     Dosage: 1.6 MG/M2, UNK, IV BOLUS
     Route: 040
  2. RITUXIMAB (RITUXIMAB) INJECTION, 375MG/M2 [Suspect]
     Indication: NON-HODGKIN'S LYMPHOMA
     Dosage: 375 MG/M2

REACTIONS (4)
  - INTERSTITIAL LUNG DISEASE [None]
  - INTESTINAL ADENOCARCINOMA [None]
  - MULTI-ORGAN FAILURE [None]
  - PLEURAL EFFUSION [None]
